FAERS Safety Report 6294940-9 (Version None)
Quarter: 2009Q3

REPORT INFORMATION
  Report Type: 
  Country: None (occurrence: None)
  Receive Date: 20090731
  Receipt Date: 20090731
  Transmission Date: 20100115
  Serious: Yes (Disabling)
  Sender: FDA-Public Use
  Company Number: None

PATIENT
  Age: 14 Year
  Sex: Male
  Weight: 58.9676 kg

DRUGS (1)
  1. PREVACID [Suspect]
     Indication: GASTROINTESTINAL DISORDER
     Dosage: 30MG ONCE DAILY PO
     Route: 048
     Dates: start: 20090713, end: 20090727

REACTIONS (1)
  - ALOPECIA [None]
